FAERS Safety Report 8455948-8 (Version None)
Quarter: 2012Q2

REPORT INFORMATION
  Report Type: 
  Country: None (occurrence: None)
  Receive Date: 20120621
  Receipt Date: 20120615
  Transmission Date: 20120825
  Serious: Yes (Other)
  Sender: FDA-Public Use
  Company Number: CA-ROCHE-1058545

PATIENT
  Sex: Female

DRUGS (4)
  1. XOLAIR [Suspect]
     Indication: ASTHMA
     Route: 058
     Dates: start: 20110531
  2. ALVESCO [Concomitant]
  3. VENTOLIN [Concomitant]
  4. SYMBICORT [Concomitant]

REACTIONS (5)
  - NASOPHARYNGITIS [None]
  - BLOOD PRESSURE INCREASED [None]
  - OROPHARYNGEAL PAIN [None]
  - ASTHMA [None]
  - DRUG INEFFECTIVE [None]
